FAERS Safety Report 13670651 (Version 1)
Quarter: 2017Q2

REPORT INFORMATION
  Report Type: Spontaneous
  Country: US (occurrence: US)
  Receive Date: 20170620
  Receipt Date: 20170620
  Transmission Date: 20170830
  Serious: Yes (Other)
  Sender: FDA-Public Use
  Company Number: US-NOVOPROD-550390

PATIENT
  Age: 61 Year
  Sex: Female

DRUGS (1)
  1. NOVOLOG [Suspect]
     Active Substance: INSULIN ASPART
     Indication: DIABETES MELLITUS
     Dosage: UNK
     Route: 058

REACTIONS (11)
  - Diabetic neuropathy [Unknown]
  - Anaemia [Unknown]
  - Blindness unilateral [Unknown]
  - Fatigue [Unknown]
  - End stage renal disease [Unknown]
  - Malaise [Unknown]
  - Dyspnoea exertional [Unknown]
  - Visual impairment [Unknown]
  - Diabetic retinopathy [Unknown]
  - Hyperparathyroidism [Unknown]
  - Swelling [Unknown]
